FAERS Safety Report 9027060 (Version 1)
Quarter: 2013Q1

REPORT INFORMATION
  Report Type: Spontaneous
  Country: US (occurrence: US)
  Receive Date: 20130123
  Receipt Date: 20130123
  Transmission Date: 20140127
  Serious: Yes (Disabling)
  Sender: FDA-Public Use
  Company Number: US-CELGENEUS-163-21880-13012233

PATIENT
  Sex: Female

DRUGS (2)
  1. REVLIMID [Suspect]
     Indication: MYELODYSPLASTIC SYNDROME
     Dosage: 5 MILLIGRAM
     Route: 048
     Dates: start: 20120808
  2. EXJADE [Suspect]
     Indication: IRON OVERLOAD
     Route: 065

REACTIONS (5)
  - Iron overload [Unknown]
  - Sinusitis [Unknown]
  - Pruritus [Unknown]
  - Diarrhoea [Unknown]
  - Cough [Unknown]
